FAERS Safety Report 25527251 (Version 1)
Quarter: 2025Q3

REPORT INFORMATION
  Report Type: Report from Study
  Country: US (occurrence: US)
  Receive Date: 20250708
  Receipt Date: 20250708
  Transmission Date: 20251021
  Serious: Yes (Other)
  Sender: JOHNSON AND JOHNSON
  Company Number: US-JNJFOC-20250636960

PATIENT

DRUGS (1)
  1. HUMAN THROMBIN [Suspect]
     Active Substance: HUMAN THROMBIN
     Indication: Vascular pseudoaneurysm

REACTIONS (3)
  - Peripheral artery thrombosis [Unknown]
  - Off label use [Unknown]
  - Off label use [Unknown]
